FAERS Safety Report 15104710 (Version 1)
Quarter: 2018Q3

REPORT INFORMATION
  Report Type: Spontaneous
  Country: US (occurrence: US)
  Receive Date: 20180703
  Receipt Date: 20180703
  Transmission Date: 20181010
  Serious: No
  Sender: FDA-Public Use
  Company Number: US-BAUSCH-BL-2017-034069

PATIENT
  Sex: Male

DRUGS (2)
  1. BESIVANCE [Suspect]
     Active Substance: BESIFLOXACIN
     Indication: PREOPERATIVE CARE
     Dosage: LEFT EYE, PRIOR TO AN EYE SURGERY
     Route: 047
     Dates: start: 20171126, end: 2017
  2. BESIVANCE [Suspect]
     Active Substance: BESIFLOXACIN
     Indication: POSTOPERATIVE CARE
     Dosage: LEFT EYE, AFTER SURGERY
     Route: 047
     Dates: start: 2017

REACTIONS (3)
  - Foreign body sensation in eyes [Not Recovered/Not Resolved]
  - Off label use [Not Recovered/Not Resolved]
  - Product physical consistency issue [Unknown]

NARRATIVE: CASE EVENT DATE: 20171126
